FAERS Safety Report 5711702-9 (Version None)
Quarter: 2008Q2

REPORT INFORMATION
  Report Type: 
  Country: None (occurrence: None)
  Receive Date: 20080421
  Receipt Date: 20080410
  Transmission Date: 20081010
  Serious: Yes (Other)
  Sender: FDA-Public Use
  Company Number: PHHY2008VE05515

PATIENT

DRUGS (1)
  1. ACLASTA [Suspect]
     Dosage: 5 MG

REACTIONS (1)
  - UNRESPONSIVE TO STIMULI [None]
